FAERS Safety Report 7178927-X (Version None)
Quarter: 2010Q4

REPORT INFORMATION
  Report Type: 
  Country: None (occurrence: None)
  Receive Date: 20101221
  Receipt Date: 20101216
  Transmission Date: 20110411
  Serious: Yes (Other)
  Sender: FDA-Public Use
  Company Number: US-AMGEN-USASP2010007857

PATIENT

DRUGS (6)
  1. NPLATE [Suspect]
     Indication: IDIOPATHIC THROMBOCYTOPENIC PURPURA
     Dosage: 6 A?G/KG, QWK
     Dates: start: 20101019
  2. ALLOPURINOL [Suspect]
     Dosage: UNK
     Dates: start: 20101102, end: 20101123
  3. FLOMAX [Concomitant]
  4. ZANTAC                             /00550801/ [Concomitant]
  5. MULTIVITAMIN                       /00097801/ [Concomitant]
  6. PROCRIT [Concomitant]

REACTIONS (3)
  - DRUG ERUPTION [None]
  - RASH ERYTHEMATOUS [None]
  - SQUAMOUS CELL CARCINOMA OF SKIN [None]
